FAERS Safety Report 6841617-4 (Version None)
Quarter: 2010Q3

REPORT INFORMATION
  Report Type: 
  Country: None (occurrence: None)
  Receive Date: 20100714
  Receipt Date: 20071220
  Transmission Date: 20110219
  Serious: No
  Sender: FDA-Public Use
  Company Number: US-PFIZER INC-2007055691

PATIENT
  Sex: Female
  Weight: 69.85 kg

DRUGS (6)
  1. CHANTIX [Suspect]
     Indication: SMOKING CESSATION THERAPY
     Dates: start: 20070613
  2. ZOLOFT [Concomitant]
  3. AMITRIPTYLINE HYDROCHLORIDE [Concomitant]
  4. ALBUTEROL [Concomitant]
  5. DARVOCET [Concomitant]
  6. ZOCOR [Concomitant]

REACTIONS (4)
  - DEPRESSION [None]
  - FLATULENCE [None]
  - URINE COLOUR ABNORMAL [None]
  - URINE ODOUR ABNORMAL [None]
